FAERS Safety Report 5309424-1 (Version None)
Quarter: 2007Q2

REPORT INFORMATION
  Report Type: 
  Country: None (occurrence: None)
  Receive Date: 20070425
  Receipt Date: 20070425
  Transmission Date: 20071010
  Serious: Yes (Other)
  Sender: FDA-Public Use
  Company Number: None

PATIENT
  Age: 85 Year
  Sex: Male
  Weight: 99.7913 kg

DRUGS (9)
  1. PLAVIX [Suspect]
     Indication: ARTERIOSCLEROSIS CORONARY ARTERY
     Dosage: 75MG QD PO
     Route: 048
     Dates: start: 20070327, end: 20070406
  2. PLAVIX [Suspect]
     Indication: CARDIOMYOPATHY
     Dosage: 75MG QD PO
     Route: 048
     Dates: start: 20070327, end: 20070406
  3. PLAVIX [Suspect]
     Indication: DIABETES MELLITUS
     Dosage: 75MG QD PO
     Route: 048
     Dates: start: 20070327, end: 20070406
  4. ASPIRIN [Concomitant]
  5. FLEXERIL [Concomitant]
  6. AVANDIA [Concomitant]
  7. LISINOPRIL [Concomitant]
  8. ISOSORBIDE [Concomitant]
  9. FOLIC ACID [Concomitant]

REACTIONS (3)
  - DYSARTHRIA [None]
  - HALLUCINATION, VISUAL [None]
  - MUSCULAR WEAKNESS [None]
